FAERS Safety Report 12981506 (Version 1)
Quarter: 2016Q4

REPORT INFORMATION
  Report Type: Spontaneous
  Country: GB (occurrence: GB)
  Receive Date: 20161129
  Receipt Date: 20161129
  Transmission Date: 20170207
  Serious: Yes (Other)
  Sender: FDA-Public Use
  Company Number: GB-AUROBINDO-AUR-APL-2016-14233

PATIENT
  Age: 37 Year
  Sex: Female

DRUGS (1)
  1. METRONIDAZOLE TABLET [Suspect]
     Active Substance: METRONIDAZOLE
     Indication: BACTERIAL VAGINOSIS
     Dosage: 1 DF, 3 TIMES A DAY
     Route: 048
     Dates: start: 20161003, end: 20161004

REACTIONS (3)
  - Diarrhoea [Not Recovered/Not Resolved]
  - Exposure during pregnancy [Not Recovered/Not Resolved]
  - Muscle spasms [Not Recovered/Not Resolved]

NARRATIVE: CASE EVENT DATE: 20161103
